FAERS Safety Report 8471658-5 (Version None)
Quarter: 2012Q2

REPORT INFORMATION
  Report Type: 
  Country: None (occurrence: None)
  Receive Date: 20120627
  Receipt Date: 20120622
  Transmission Date: 20120825
  Serious: Yes (Hospitalization)
  Sender: FDA-Public Use
  Company Number: TR-ABBOTT-12P-161-0949226-00

PATIENT
  Age: 59 Year
  Sex: Male

DRUGS (2)
  1. LITHIUM CARBONATE [Suspect]
     Indication: SUICIDE ATTEMPT
     Route: 048
  2. VALPROIC ACID [Suspect]
     Indication: SUICIDE ATTEMPT
     Route: 048

REACTIONS (11)
  - DRUG LEVEL INCREASED [None]
  - TREMOR [None]
  - VOMITING [None]
  - DIZZINESS [None]
  - OVERDOSE [None]
  - DYSKINESIA [None]
  - DYSARTHRIA [None]
  - CEREBELLAR ATAXIA [None]
  - DIPLOPIA [None]
  - FATIGUE [None]
  - NAUSEA [None]
